FAERS Safety Report 7649603-1 (Version None)
Quarter: 2011Q3

REPORT INFORMATION
  Report Type: 
  Country: None (occurrence: None)
  Receive Date: 20110727
  Receipt Date: 20110722
  Transmission Date: 20111222
  Serious: Yes (Death)
  Sender: FDA-Public Use
  Company Number: 201110916

PATIENT
  Age: 58 Year
  Sex: Male

DRUGS (3)
  1. DILAUDID [Concomitant]
  2. BUPIVACAINE HCL [Concomitant]
  3. LIORESAL [Suspect]
     Indication: MUSCLE SPASTICITY
     Dosage: 179.82 MCG, DAILY; INTRATHECAL
     Route: 039

REACTIONS (1)
  - DEATH [None]
